FAERS Safety Report 25792924 (Version 1)
Quarter: 2025Q3

REPORT INFORMATION
  Report Type: Spontaneous
  Country: TW (occurrence: TW)
  Receive Date: 20250911
  Receipt Date: 20250911
  Transmission Date: 20251021
  Serious: Yes (Life-Threatening)
  Sender: ABBVIE
  Company Number: TW-ABBVIE-6455037

PATIENT
  Age: 17 Month
  Sex: Male
  Weight: 10 kg

DRUGS (1)
  1. ULTANE [Suspect]
     Active Substance: SEVOFLURANE
     Indication: General anaesthesia
     Route: 050

REACTIONS (4)
  - Myocardial injury [Unknown]
  - Hyperthermia malignant [Unknown]
  - Renal injury [Unknown]
  - Liver injury [Unknown]

NARRATIVE: CASE EVENT DATE: 20250828
